FAERS Safety Report 8106348-1 (Version None)
Quarter: 2012Q1

REPORT INFORMATION
  Report Type: 
  Country: None (occurrence: None)
  Receive Date: 20120202
  Receipt Date: 20120126
  Transmission Date: 20120608
  Serious: Yes (Hospitalization)
  Sender: FDA-Public Use
  Company Number: BE-EISAI INC-E7389-01595-CLI-BE

PATIENT
  Sex: Female
  Weight: 54 kg

DRUGS (4)
  1. EPIRUBICIN HYDROCHLORIDE [Suspect]
     Indication: BREAST CANCER
     Route: 041
     Dates: start: 20110920
  2. GLUCOSE W/SODIUM CHLORIDE [Concomitant]
     Dosage: 1000 ML GLUCOSE 5%, NACL 9%
     Route: 041
  3. PERFUSALGAN [Concomitant]
     Route: 042
  4. BRONCHOSEDAL CODEINE [Concomitant]
     Indication: COUGH
     Route: 048

REACTIONS (1)
  - PLEURAL EFFUSION [None]
